FAERS Safety Report 9791167 (Version 3)
Quarter: 2014Q1

REPORT INFORMATION
  Report Type: Spontaneous
  Country: JP (occurrence: JP)
  Receive Date: 20131231
  Receipt Date: 20140107
  Transmission Date: 20141002
  Serious: Yes (Other)
  Sender: FDA-Public Use
  Company Number: JP-PFIZER INC-2013336740

PATIENT
  Age: 75 Year
  Sex: Female

DRUGS (3)
  1. CELECOX [Suspect]
     Indication: JOINT DISLOCATION
     Dosage: 100 MG, 1X/DAY
     Route: 048
     Dates: start: 20131007, end: 20131022
  2. CELECOX [Suspect]
     Dosage: 200 MG, 1X/DAY
     Route: 048
     Dates: start: 20131105, end: 20131105
  3. DICLOFENAC [Concomitant]
     Indication: JOINT DISLOCATION
     Dosage: UNK
     Dates: start: 20131007

REACTIONS (5)
  - Anaphylactic reaction [Recovered/Resolved]
  - Nausea [Recovered/Resolved]
  - Vertigo [Recovered/Resolved]
  - Dyspnoea [Recovered/Resolved]
  - Off label use [Unknown]
